FAERS Safety Report 9217321 (Version 1)
Quarter: 2013Q2

REPORT INFORMATION
  Report Type: Spontaneous
  Country: FR (occurrence: FR)
  Receive Date: 20130408
  Receipt Date: 20130408
  Transmission Date: 20140414
  Serious: Yes (Disabling, Other)
  Sender: FDA-Public Use
  Company Number: FR-ASTRAZENECA-2013SE20698

PATIENT
  Age: 72 Year
  Sex: Male

DRUGS (18)
  1. CRESTOR [Suspect]
     Route: 048
     Dates: start: 2007, end: 201212
  2. EFFEXOR [Suspect]
     Route: 048
     Dates: end: 2010
  3. EFFEXOR [Suspect]
     Route: 048
     Dates: end: 201212
  4. EFFEXOR [Suspect]
     Route: 048
     Dates: start: 201301
  5. LEXOMIL [Suspect]
     Route: 048
     Dates: end: 2010
  6. LEXOMIL [Suspect]
     Route: 048
     Dates: end: 201212
  7. LEXOMIL [Suspect]
     Route: 048
     Dates: start: 201301
  8. NOVONORM [Concomitant]
     Indication: TYPE 2 DIABETES MELLITUS
     Route: 048
     Dates: end: 201212
  9. DUOPLAVIN [Concomitant]
     Route: 048
     Dates: end: 201212
  10. DUOPLAVIN [Concomitant]
     Route: 048
     Dates: start: 201301
  11. AMIODARONE [Concomitant]
     Route: 048
     Dates: end: 201212
  12. AMIODARONE [Concomitant]
     Route: 048
     Dates: start: 201301
  13. COTRIATEC [Concomitant]
     Route: 048
     Dates: end: 201212
  14. COTRIATEC [Concomitant]
     Route: 048
     Dates: start: 201301
  15. LASILIX FAIBLE [Concomitant]
     Route: 048
     Dates: end: 201212
  16. LASILIX FAIBLE [Concomitant]
     Route: 048
     Dates: start: 201301
  17. JANUVIA [Concomitant]
     Route: 048
     Dates: end: 201212
  18. JANUVIA [Concomitant]
     Route: 048
     Dates: start: 201301

REACTIONS (3)
  - Overdose [Unknown]
  - Extrapyramidal disorder [Recovering/Resolving]
  - Parkinson^s disease [Unknown]
